FAERS Safety Report 10954210 (Version 6)
Quarter: 2015Q3

REPORT INFORMATION
  Report Type: Spontaneous
  Country: US (occurrence: US)
  Receive Date: 20150325
  Receipt Date: 20150922
  Transmission Date: 20151125
  Serious: Yes (Life-Threatening, Other)
  Sender: FDA-Public Use
  Company Number: US-MERCK-1503USA009522

PATIENT
  Age: 55 Year
  Sex: Male

DRUGS (8)
  1. NYSTATIN. [Concomitant]
     Active Substance: NYSTATIN
  2. COMPAZINE [Concomitant]
     Active Substance: PROCHLORPERAZINE MALEATE
  3. TOPROL XL [Concomitant]
     Active Substance: METOPROLOL SUCCINATE
     Dosage: 1 DF, QAM
     Route: 048
  4. KEYTRUDA [Suspect]
     Active Substance: PEMBROLIZUMAB
     Indication: MALIGNANT MELANOMA
     Dosage: 200 ML, ONCE, 2MG/KG.
     Route: 042
     Dates: start: 20141222, end: 20141222
  5. DEXAMETHASONE. [Concomitant]
     Active Substance: DEXAMETHASONE
     Dosage: TAPERING DOSE
     Dates: start: 20140725
  6. NORCO [Concomitant]
     Active Substance: ACETAMINOPHEN\HYDROCODONE BITARTRATE
     Indication: PAIN
     Dosage: 1-2 TABLETS VERY 4 HOURS, PRN
     Route: 048
  7. PRILOSEC [Concomitant]
     Active Substance: OMEPRAZOLE MAGNESIUM
     Dosage: 1 TABLET DAILY BEFORE BREAKFAST
     Route: 048
  8. ROXICODONE [Concomitant]
     Active Substance: OXYCODONE HYDROCHLORIDE
     Indication: PAIN
     Dosage: 1 TABLET EVERY HOURS; 1-2 TABLETS EVERY 4 HOURS, PRN
     Route: 048

REACTIONS (33)
  - Transaminases increased [Recovering/Resolving]
  - Oral infection [Recovering/Resolving]
  - Protein total decreased [Unknown]
  - Protein total decreased [Unknown]
  - Protein total abnormal [Unknown]
  - Protein total abnormal [Unknown]
  - Blood albumin decreased [Unknown]
  - Protein total abnormal [Unknown]
  - Hyperbilirubinaemia [Recovering/Resolving]
  - Muscular weakness [Recovering/Resolving]
  - Blood potassium decreased [Unknown]
  - Protein total decreased [Unknown]
  - Malignant neoplasm progression [Recovering/Resolving]
  - Rhinorrhoea [Recovering/Resolving]
  - Blood albumin decreased [Unknown]
  - Blood albumin decreased [Unknown]
  - Blood albumin decreased [Unknown]
  - Blood lactate dehydrogenase decreased [Recovering/Resolving]
  - Dry mouth [Recovering/Resolving]
  - Blood albumin decreased [Unknown]
  - Blood albumin decreased [Unknown]
  - Blood albumin decreased [Unknown]
  - Blood albumin decreased [Unknown]
  - Gait disturbance [Unknown]
  - Blood albumin decreased [Unknown]
  - Protein total decreased [Unknown]
  - Blood albumin decreased [Unknown]
  - Blood albumin decreased [Unknown]
  - Blood albumin decreased [Unknown]
  - Nasal congestion [Recovering/Resolving]
  - Hepatic cirrhosis [Unknown]
  - Blood glucose increased [Unknown]
  - Blood alkaline phosphatase abnormal [Unknown]

NARRATIVE: CASE EVENT DATE: 201412
